FAERS Safety Report 17224857 (Version 1)
Quarter: 2020Q1

REPORT INFORMATION
  Report Type: Spontaneous
  Country: US (occurrence: US)
  Receive Date: 20191231
  Receipt Date: 20191231
  Transmission Date: 20200409
  Serious: Yes (Other)
  Sender: FDA-Public Use
  Company Number: None

PATIENT
  Age: 16 Year
  Sex: Male

DRUGS (3)
  1. BENZONATATE. [Concomitant]
     Active Substance: BENZONATATE
     Dates: start: 20191229
  2. FLUTICASE NASAL SPRAY [Concomitant]
     Dates: start: 20191229
  3. OSELTAMIVIR [Suspect]
     Active Substance: OSELTAMIVIR
     Indication: INFLUENZA
     Route: 048
     Dates: start: 20191231, end: 20191231

REACTIONS (2)
  - Feeling abnormal [None]
  - Affect lability [None]

NARRATIVE: CASE EVENT DATE: 20191231
